FAERS Safety Report 12606287 (Version 1)
Quarter: 2016Q3

REPORT INFORMATION
  Report Type: Spontaneous
  Country: US (occurrence: None)
  Receive Date: 20160728
  Receipt Date: 20160728
  Transmission Date: 20161109
  Serious: Yes (Hospitalization)
  Sender: FDA-Public Use
  Company Number: None

PATIENT
  Age: 61 Year
  Sex: Male
  Weight: 96 kg

DRUGS (2)
  1. SOFOSBUVIR [Suspect]
     Active Substance: SOFOSBUVIR
     Indication: CARDIAC FAILURE CONGESTIVE
     Route: 048
     Dates: start: 20140718, end: 20150102
  2. SIMEPREVIR [Suspect]
     Active Substance: SIMEPREVIR
     Indication: CARDIAC FAILURE CONGESTIVE
     Route: 048
     Dates: start: 20140718, end: 20150102

REACTIONS (3)
  - Ejection fraction decreased [None]
  - Crepitations [None]
  - Dyspnoea [None]

NARRATIVE: CASE EVENT DATE: 20141215
